FAERS Safety Report 9633272 (Version 3)
Quarter: 2013Q4

REPORT INFORMATION
  Report Type: Spontaneous
  Country: IE (occurrence: IE)
  Receive Date: 20131021
  Receipt Date: 20131223
  Transmission Date: 20140711
  Serious: Yes (Hospitalization, Other)
  Sender: FDA-Public Use
  Company Number: PHFR2013IE005827

PATIENT
  Age: 74 Year
  Sex: Male

DRUGS (5)
  1. CLOZARIL [Suspect]
     Indication: SCHIZOPHRENIA
     Dosage: UNK
     Route: 048
     Dates: start: 20131004, end: 20131012
  2. CLOZARIL [Suspect]
     Indication: PSYCHOTIC DISORDER
     Dosage: 100 MG, UNK
     Route: 048
     Dates: start: 20131013, end: 20131015
  3. PAROXETINE [Concomitant]
     Indication: DEPRESSION
     Dosage: 40 MG, UNK
     Route: 048
  4. ASPIRIN [Concomitant]
     Indication: HYPERTENSION
     Dosage: 75 MG, UNK
  5. AMLODIPINE [Concomitant]
     Indication: HYPERTENSION
     Dosage: 5 MG, UNK

REACTIONS (7)
  - Cerebrovascular accident [Unknown]
  - Transient ischaemic attack [Recovered/Resolved]
  - Asthenia [Unknown]
  - Hemiparesis [Unknown]
  - Dysarthria [Unknown]
  - White blood cell count increased [Unknown]
  - Neutrophil count increased [Unknown]
